FAERS Safety Report 7966829-8 (Version None)
Quarter: 2011Q4

REPORT INFORMATION
  Report Type: 
  Country: None (occurrence: None)
  Receive Date: 20111209
  Receipt Date: 20111130
  Transmission Date: 20120403
  Serious: No
  Sender: FDA-Public Use
  Company Number: US-BIOGENIDEC-2011BI045534

PATIENT
  Age: 47 Year
  Sex: Female

DRUGS (1)
  1. AVONEX [Suspect]
     Indication: MULTIPLE SCLEROSIS
     Route: 030
     Dates: start: 20050826

REACTIONS (6)
  - CHILLS [None]
  - BODY TEMPERATURE [None]
  - PAIN [None]
  - DEPRESSED MOOD [None]
  - FRUSTRATION [None]
  - FIBROMYALGIA [None]
